FAERS Safety Report 7010816-3 (Version None)
Quarter: 2010Q3

REPORT INFORMATION
  Report Type: 
  Country: None (occurrence: None)
  Receive Date: 20100923
  Receipt Date: 20100923
  Transmission Date: 20110219
  Serious: Yes (Hospitalization, Other)
  Sender: FDA-Public Use
  Company Number: None

PATIENT
  Age: 46 Year
  Sex: Female
  Weight: 68.0396 kg

DRUGS (4)
  1. KENALOG [Suspect]
     Indication: COMPLEX REGIONAL PAIN SYNDROME
     Dosage: UNK UNK INTRADISCAL
     Route: 024
     Dates: start: 20100301, end: 20100830
  2. OXYCONTIN [Suspect]
     Indication: CHRONIC FATIGUE SYNDROME
     Dosage: 20MG TID INJ
     Dates: start: 20100101, end: 20100908
  3. OXYCONTIN [Suspect]
     Indication: FIBROMYALGIA
     Dosage: 20MG TID INJ
     Dates: start: 20100101, end: 20100908
  4. OXYCONTIN [Suspect]
     Indication: NEUROMYOPATHY
     Dosage: 20MG TID INJ
     Dates: start: 20100101, end: 20100908

REACTIONS (25)
  - BONE PAIN [None]
  - CHEST PAIN [None]
  - CONDITION AGGRAVATED [None]
  - CONTUSION [None]
  - DIZZINESS [None]
  - DRY SKIN [None]
  - DYSPNOEA [None]
  - DYSTONIA [None]
  - ERYTHEMA [None]
  - FIBROMYALGIA [None]
  - HEADACHE [None]
  - HICCUPS [None]
  - HYPERHIDROSIS [None]
  - HYPERSENSITIVITY [None]
  - HYPOAESTHESIA [None]
  - NAUSEA [None]
  - PAIN [None]
  - PHOTOPHOBIA [None]
  - POST PROCEDURAL COMPLICATION [None]
  - PRURITUS [None]
  - SCRATCH [None]
  - SKIN ATROPHY [None]
  - TINNITUS [None]
  - URINARY INCONTINENCE [None]
  - VOMITING [None]
